FAERS Safety Report 12111146 (Version 1)
Quarter: 2016Q1

REPORT INFORMATION
  Report Type: Spontaneous
  Country: BR (occurrence: BR)
  Receive Date: 20160224
  Receipt Date: 20160224
  Transmission Date: 20160526
  Serious: Yes (Other)
  Sender: FDA-Public Use
  Company Number: BR-JNJFOC-20160214382

PATIENT

DRUGS (2)
  1. RISPERIDONE. [Suspect]
     Active Substance: RISPERIDONE
     Indication: ABNORMAL BEHAVIOUR
     Route: 065
  2. RISPERIDONE. [Suspect]
     Active Substance: RISPERIDONE
     Indication: MENTAL DISORDER
     Route: 065

REACTIONS (11)
  - Overweight [Unknown]
  - Leptin level increased [Unknown]
  - Hypertriglyceridaemia [Unknown]
  - Insulin resistance test [Unknown]
  - Metabolic syndrome [Unknown]
  - Hypocholesterolaemia [Unknown]
  - Hypertension [Unknown]
  - Blood cholesterol increased [Unknown]
  - Blood pressure abnormal [Unknown]
  - Obesity [Unknown]
  - Waist circumference increased [Unknown]
